FAERS Safety Report 6782568-3 (Version None)
Quarter: 2010Q2

REPORT INFORMATION
  Report Type: 
  Country: None (occurrence: None)
  Receive Date: 20100621
  Receipt Date: 20100609
  Transmission Date: 20101027
  Serious: Yes (Other)
  Sender: FDA-Public Use
  Company Number: US-TYCO HEALTHCARE/MALLINCKRODT-T201001399

PATIENT

DRUGS (8)
  1. METHADONE [Suspect]
     Indication: FIBROMYALGIA
     Dosage: 10 MG TABLET, ONE DOSE ONLY
     Dates: start: 20100405, end: 20100405
  2. VERELAN PM [Suspect]
     Indication: HYPERTENSION
     Dosage: UNK
  3. DILTIAZEM [Concomitant]
     Indication: HYPERTENSION
     Dosage: 180 MG
     Route: 048
  4. VISTARIL [Concomitant]
     Indication: ANXIETY
  5. ESTROGEN NOS [Concomitant]
     Dosage: 0.45
  6. VITAMIN B                          /90046501/ [Concomitant]
     Dosage: UNK
  7. VITAMIN A [Concomitant]
     Dosage: UNK
  8. LEVOTHYROXINE SODIUM [Concomitant]
     Indication: THYROID DISORDER

REACTIONS (4)
  - ANGIOEDEMA [None]
  - DYSPNOEA [None]
  - PRURITUS GENERALISED [None]
  - SWOLLEN TONGUE [None]
